FAERS Safety Report 9220545 (Version 1)
Quarter: 2013Q2

REPORT INFORMATION
  Report Type: Spontaneous
  Country: US (occurrence: US)
  Receive Date: 20130409
  Receipt Date: 20130409
  Transmission Date: 20140414
  Serious: Yes (Hospitalization)
  Sender: FDA-Public Use
  Company Number: US-MYLANLABS-2013S1006987

PATIENT
  Age: 45 Year
  Sex: Female

DRUGS (1)
  1. BUPROPION HYDROCHLORIDE EXTENDED RELEASE SR [Suspect]
     Route: 048
     Dates: start: 20121213

REACTIONS (2)
  - Respiratory arrest [Recovered/Resolved]
  - Grand mal convulsion [Recovered/Resolved]
